FAERS Safety Report 7854397-0 (Version None)
Quarter: 2011Q4

REPORT INFORMATION
  Report Type: 
  Country: None (occurrence: None)
  Receive Date: 20111026
  Receipt Date: 20110908
  Transmission Date: 20120403
  Serious: Yes (Other)
  Sender: FDA-Public Use
  Company Number: ES-CEPHALON-2011005514

PATIENT
  Age: 57 Year
  Sex: Female

DRUGS (1)
  1. ACTIQ [Suspect]
     Indication: RHEUMATOID ARTHRITIS
     Route: 002
     Dates: start: 20080411

REACTIONS (2)
  - DRUG ABUSE [None]
  - DRUG DEPENDENCE [None]
